FAERS Safety Report 4416020-7 (Version None)
Quarter: 2004Q3

REPORT INFORMATION
  Report Type: 
  Country: None (occurrence: None)
  Receive Date: 20040802
  Receipt Date: 20040720
  Transmission Date: 20050211
  Serious: Yes (Hospitalization)
  Sender: FDA-Public Use
  Company Number: 04P-066-0265220-00

PATIENT
  Age: 72 Year
  Sex: Female

DRUGS (6)
  1. HUMIRA [Suspect]
     Indication: RHEUMATOID ARTHRITIS
     Dosage: 40 MG, 1 IN 2 WK, SUBCUTANEOUS
     Route: 058
     Dates: start: 20040410, end: 20040424
  2. PREDNISOLONE [Concomitant]
  3. DILTIAZEM [Concomitant]
  4. BROMAZEPAM [Concomitant]
  5. ESOMEPRAZOLE [Concomitant]
  6. CARDESIL [Concomitant]

REACTIONS (4)
  - INJECTION SITE NECROSIS [None]
  - PYREXIA [None]
  - TYPE IV HYPERSENSITIVITY REACTION [None]
  - VASCULITIS [None]
